FAERS Safety Report 7327139-5 (Version None)
Quarter: 2011Q1

REPORT INFORMATION
  Report Type: 
  Country: None (occurrence: None)
  Receive Date: 20110218
  Receipt Date: 20110210
  Transmission Date: 20110831
  Serious: Yes (Life-Threatening, Other)
  Sender: FDA-Public Use
  Company Number: TPA2010A04571

PATIENT
  Age: 77 Year
  Sex: Male
  Weight: 87.9 kg

DRUGS (8)
  1. FERROUS SULFATE TAB [Concomitant]
  2. ALLOPURINOL [Concomitant]
  3. VITAMIN B6 [Concomitant]
  4. B12 INJECTION (ALL OTHER THERAPEUTIC PRODUCTS) [Concomitant]
  5. KAPIDEX (DEXLANSOPRAZOLE) [Suspect]
     Indication: GASTROOESOPHAGEAL REFLUX DISEASE
     Dosage: 30 MG, 1 IN 1 D, ORAL
     Route: 048
     Dates: start: 20091105, end: 20100701
  6. ZOCOR [Concomitant]
  7. NITROGLYCERIN [Concomitant]
  8. ASPIRIN [Concomitant]

REACTIONS (4)
  - ANAEMIA HAEMOLYTIC AUTOIMMUNE [None]
  - FATIGUE [None]
  - DYSPNOEA [None]
  - SKIN HYPOPIGMENTATION [None]
